FAERS Safety Report 6029610-5 (Version None)
Quarter: 2009Q1

REPORT INFORMATION
  Report Type: 
  Country: None (occurrence: None)
  Receive Date: 20090107
  Receipt Date: 20080919
  Transmission Date: 20090719
  Serious: No
  Sender: FDA-Public Use
  Company Number: US-ABBOTT-08P-163-0477556-00

PATIENT
  Sex: Female
  Weight: 78.088 kg

DRUGS (6)
  1. VICODIN ES [Suspect]
     Indication: INTERVERTEBRAL DISC PROTRUSION
     Dosage: 7.5/500 1 PILL EVERY 4 HOURS AS NEEDED
     Route: 048
     Dates: start: 20000101
  2. VICODIN ES [Suspect]
     Indication: PAIN
  3. CIRRUS [Concomitant]
     Indication: PRURITUS
     Dosage: DAILY AT BEDTIME
     Route: 048
     Dates: start: 20070101
  4. CIRRUS [Concomitant]
     Indication: PROPHYLAXIS
  5. VALIUM [Concomitant]
     Indication: INTERVERTEBRAL DISC PROTRUSION
     Dosage: AS NEEDED
     Route: 048
     Dates: start: 20060101
  6. VALIUM [Concomitant]
     Indication: PAIN

REACTIONS (4)
  - ANAEMIA [None]
  - BLOOD CHOLESTEROL INCREASED [None]
  - DRUG INEFFECTIVE [None]
  - PAIN [None]
